FAERS Safety Report 12048286 (Version 1)
Quarter: 2016Q1

REPORT INFORMATION
  Report Type: Report from Study
  Country: US (occurrence: US)
  Receive Date: 20160208
  Receipt Date: 20160208
  Transmission Date: 20160526
  Serious: No
  Sender: FDA-Public Use
  Company Number: US-ABBVIE-15P-163-1384646-00

PATIENT
  Age: 72 Year
  Sex: Male

DRUGS (1)
  1. HUMIRA [Suspect]
     Active Substance: ADALIMUMAB
     Indication: COLITIS ULCERATIVE
     Route: 065
     Dates: start: 20141117

REACTIONS (7)
  - Drug dose omission [Not Recovered/Not Resolved]
  - Pyrexia [Unknown]
  - Feeling abnormal [Unknown]
  - Cellulitis [Recovered/Resolved]
  - Night sweats [Recovered/Resolved]
  - Injection site pain [Unknown]
  - Diarrhoea [Recovered/Resolved]

NARRATIVE: CASE EVENT DATE: 20150415
